FAERS Safety Report 22376698 (Version 3)
Quarter: 2025Q2

REPORT INFORMATION
  Report Type: Report from Study
  Country: US (occurrence: US)
  Receive Date: 20230528
  Receipt Date: 20250513
  Transmission Date: 20250716
  Serious: Yes (Other)
  Sender: BEIGENE
  Company Number: US-BEIGENE-BGN-2023-004593

PATIENT
  Age: 88 Year
  Weight: 80.272 kg

DRUGS (18)
  1. BRUKINSA [Suspect]
     Active Substance: ZANUBRUTINIB
     Indication: Waldenstrom^s macroglobulinaemia
     Dosage: 160 MILLIGRAM, BID
  2. BRUKINSA [Suspect]
     Active Substance: ZANUBRUTINIB
     Dosage: 160 MILLIGRAM, BID
  3. BRUKINSA [Suspect]
     Active Substance: ZANUBRUTINIB
     Dosage: 80 MILLIGRAM, BID
  4. DOXAZOSIN [Concomitant]
     Active Substance: DOXAZOSIN MESYLATE
  5. HYDROCODONE BITARTRATE AND ACETAMINOPHEN [Concomitant]
     Active Substance: ACETAMINOPHEN\HYDROCODONE BITARTRATE
  6. METOPROLOL TARTRATE [Concomitant]
     Active Substance: METOPROLOL TARTRATE
  7. PANTOPRAZOLE SODIUM [Concomitant]
     Active Substance: PANTOPRAZOLE SODIUM
  8. POTASSIUM CITRATE [Concomitant]
     Active Substance: POTASSIUM CITRATE
  9. TORSEMIDE [Concomitant]
     Active Substance: TORSEMIDE
  10. ERGOCALCIFEROL [Concomitant]
     Active Substance: ERGOCALCIFEROL
  11. XARELTO [Concomitant]
     Active Substance: RIVAROXABAN
  12. ALLOPURINOL [Concomitant]
     Active Substance: ALLOPURINOL
  13. ARANESP [Concomitant]
     Active Substance: DARBEPOETIN ALFA
  14. INJECTAFER [Concomitant]
     Active Substance: FERRIC CARBOXYMALTOSE
  15. LOVASTATIN [Concomitant]
     Active Substance: LOVASTATIN
  16. OXYGEN [Concomitant]
     Active Substance: OXYGEN
  17. POTASSIUM [Concomitant]
     Active Substance: POTASSIUM
  18. CITRATE [Concomitant]
     Active Substance: CITRIC ACID MONOHYDRATE

REACTIONS (1)
  - Internal haemorrhage [Not Recovered/Not Resolved]
